FAERS Safety Report 12644824 (Version 2)
Quarter: 2016Q3

REPORT INFORMATION
  Report Type: Spontaneous
  Country: US (occurrence: US)
  Receive Date: 20160811
  Receipt Date: 20160923
  Transmission Date: 20161109
  Serious: No
  Sender: FDA-Public Use
  Company Number: US-PFIZER INC-2016382433

PATIENT
  Sex: Female

DRUGS (3)
  1. KETOROLAC TROMETHAMINE. [Suspect]
     Active Substance: KETOROLAC TROMETHAMINE
     Indication: RENAL TRANSPLANT
     Dosage: UNK
  2. ASPIRIN (E.C.) [Suspect]
     Active Substance: ASPIRIN
     Indication: RENAL TRANSPLANT
     Dosage: UNK
  3. IBUPROFEN. [Suspect]
     Active Substance: IBUPROFEN
     Indication: RENAL TRANSPLANT
     Dosage: UNK

REACTIONS (1)
  - Drug hypersensitivity [Unknown]
